FAERS Safety Report 6752020-X (Version None)
Quarter: 2010Q2

REPORT INFORMATION
  Report Type: 
  Country: None (occurrence: None)
  Receive Date: 20100602
  Receipt Date: 20100526
  Transmission Date: 20101027
  Serious: Yes (Hospitalization)
  Sender: FDA-Public Use
  Company Number: CH-MERCK-1005CHE00016

PATIENT
  Age: 87 Year
  Sex: Female

DRUGS (20)
  1. PRIMAXIN [Suspect]
     Indication: DERMATITIS
     Route: 041
     Dates: start: 20100324, end: 20100404
  2. ACETAMINOPHEN [Concomitant]
     Indication: PYREXIA
     Route: 048
     Dates: start: 20100320, end: 20100328
  3. ACETAZOLAMIDE [Concomitant]
     Route: 048
     Dates: start: 20100327, end: 20100328
  4. CLINDAMYCIN [Concomitant]
     Indication: DERMATITIS
     Route: 042
     Dates: start: 20100323, end: 20100324
  5. ENALAPRIL MALEATE [Suspect]
     Indication: ESSENTIAL HYPERTENSION
     Route: 048
     Dates: start: 20100328, end: 20100328
  6. ESOMEPRAZOLE [Concomitant]
     Route: 048
     Dates: start: 20100331, end: 20100404
  7. GENTAMICIN [Concomitant]
     Indication: DERMATITIS
     Route: 042
     Dates: start: 20100330, end: 20100330
  8. IRBESARTAN [Concomitant]
     Indication: ESSENTIAL HYPERTENSION
     Route: 048
     Dates: start: 20100320, end: 20100325
  9. METOPROLOL [Concomitant]
     Indication: ESSENTIAL HYPERTENSION
     Route: 048
     Dates: start: 20100330, end: 20100330
  10. VANCOMYCIN [Suspect]
     Indication: DERMATITIS
     Route: 041
     Dates: start: 20100324, end: 20100329
  11. TORSEMIDE [Concomitant]
     Indication: OEDEMA
     Route: 048
     Dates: start: 20100327
  12. TEICOPLANIN [Concomitant]
     Indication: DERMATITIS
     Route: 042
     Dates: start: 20100323, end: 20100324
  13. SPIRONOLACTONE [Concomitant]
     Route: 048
     Dates: start: 20100320, end: 20100324
  14. METFORMIN [Concomitant]
     Indication: DIABETES MELLITUS
     Route: 048
     Dates: start: 20100320, end: 20100330
  15. GLIBENCLAMID [Suspect]
     Indication: DIABETES MELLITUS
     Route: 048
     Dates: start: 20100320, end: 20100321
  16. FUROSEMIDE [Suspect]
     Indication: OEDEMA
     Route: 048
     Dates: start: 20100324, end: 20100325
  17. ENOXAPARIN SODIUM [Concomitant]
     Route: 058
     Dates: start: 20100322, end: 20100325
  18. DIPYRONE TAB [Concomitant]
     Indication: PAIN
     Route: 048
     Dates: start: 20100325, end: 20100325
  19. AMLODIPINE [Concomitant]
     Indication: ESSENTIAL HYPERTENSION
     Route: 048
     Dates: start: 20100328, end: 20100330
  20. AUGMENTIN '125' [Suspect]
     Indication: DERMATITIS
     Route: 041
     Dates: start: 20100320, end: 20100325

REACTIONS (1)
  - LINEAR IGA DISEASE [None]
